FAERS Safety Report 5061382-3 (Version None)
Quarter: 2006Q3

REPORT INFORMATION
  Report Type: 
  Country: None (occurrence: None)
  Receive Date: 20060719
  Receipt Date: 20060719
  Transmission Date: 20061208
  Serious: Yes (Hospitalization)
  Sender: FDA-Public Use
  Company Number: None

PATIENT
  Age: 45 Year
  Sex: Male

DRUGS (5)
  1. DILANTIN [Suspect]
     Indication: CONVULSION
     Dosage: 300 MG QHS
     Dates: start: 20030701
  2. BACTRIM [Suspect]
     Indication: INFECTION
     Dosage: NON VA
  3. DELAVIRIDINE [Suspect]
     Indication: VIRAL INFECTION
     Dosage: NON VA
  4. TENOFAVIR [Concomitant]
  5. RITONAVIR [Concomitant]

REACTIONS (2)
  - CONFUSIONAL STATE [None]
  - DYSARTHRIA [None]
